FAERS Safety Report 16462110 (Version 1)
Quarter: 2019Q2

REPORT INFORMATION
  Report Type: Spontaneous
  Country: US (occurrence: US)
  Receive Date: 20190621
  Receipt Date: 20190621
  Transmission Date: 20190711
  Serious: No
  Sender: FDA-Public Use
  Company Number: US-ELI_LILLY_AND_COMPANY-US201906008974

PATIENT
  Sex: Female

DRUGS (1)
  1. FORTEO [Suspect]
     Active Substance: TERIPARATIDE
     Indication: PRODUCT USED FOR UNKNOWN INDICATION
     Dosage: UNK, UNKNOWN
     Route: 065
     Dates: start: 20190603

REACTIONS (8)
  - Depression [Unknown]
  - Injection site bruising [Unknown]
  - Injection site reaction [Unknown]
  - Nausea [Unknown]
  - Injection site erythema [Not Recovered/Not Resolved]
  - Injection site mass [Unknown]
  - Decreased appetite [Unknown]
  - Tremor [Unknown]
